FAERS Safety Report 5046178-0 (Version None)
Quarter: 2006Q2

REPORT INFORMATION
  Report Type: 
  Country: None (occurrence: None)
  Receive Date: 20060601
  Receipt Date: 20060322
  Transmission Date: 20061013
  Serious: No
  Sender: FDA-Public Use
  Company Number: 2006-BP-03236BP

PATIENT
  Age: 33 Year
  Sex: Female

DRUGS (2)
  1. SPIRIVA [Suspect]
     Indication: BRONCHITIS
     Dosage: 18 MCG(18 MCG,1 PUFF, QD),IH
     Dates: start: 20060308
  2. MOTRIN [Concomitant]

REACTIONS (1)
  - ALOPECIA [None]
